FAERS Safety Report 5099513-1 (Version None)
Quarter: 2006Q3

REPORT INFORMATION
  Report Type: 
  Country: None (occurrence: None)
  Receive Date: 20060906
  Receipt Date: 20060820
  Transmission Date: 20061208
  Serious: Yes (Hospitalization)
  Sender: FDA-Public Use
  Company Number: 2005120062

PATIENT
  Age: 51 Year
  Sex: Male

DRUGS (11)
  1. CAVERJECT [Suspect]
     Indication: ERECTILE DYSFUNCTION
     Dosage: 20 MCG (20 MCG, 1 IN 1 D), INTRACAVERNOSA/2 YEARS AGO
     Route: 017
  2. CAVERJECT [Suspect]
  3. CELEXA [Suspect]
     Indication: DEPRESSION
  4. NOVOLIN N [Concomitant]
  5. NOVOLIN R (INSUILIN HUMAN) [Concomitant]
  6. ASA (ACETYLALICYLIC ACID) [Concomitant]
  7. EZETIMIBE (EZETIMIBE) [Concomitant]
  8. LISINOPRIL [Concomitant]
  9. ZOCOR [Concomitant]
  10. METOPROLOL (METOPROLOL) [Concomitant]
  11. FELODIPINE [Concomitant]

REACTIONS (4)
  - DRUG INEFFECTIVE [None]
  - MYOCARDIAL INFARCTION [None]
  - PENILE PAIN [None]
  - THERAPY NON-RESPONDER [None]
